FAERS Safety Report 8002825-2 (Version None)
Quarter: 2011Q4

REPORT INFORMATION
  Report Type: 
  Country: None (occurrence: None)
  Receive Date: 20111222
  Receipt Date: 20101116
  Transmission Date: 20120403
  Serious: No
  Sender: FDA-Public Use
  Company Number: US-GLAXOSMITHKLINE-A0892861A

PATIENT
  Age: 52 Year
  Sex: Male

DRUGS (3)
  1. RAPAFLO [Suspect]
  2. AVODART [Suspect]
     Indication: BENIGN PROSTATIC HYPERPLASIA
     Dosage: .5MG PER DAY
     Route: 048
     Dates: start: 20101001
  3. BENADRYL [Concomitant]

REACTIONS (1)
  - PRURITUS [None]
